FAERS Safety Report 21648320 (Version 2)
Quarter: 2022Q4

REPORT INFORMATION
  Report Type: Report from Study
  Country: DE (occurrence: DE)
  Receive Date: 20221128
  Receipt Date: 20221230
  Transmission Date: 20230112
  Serious: No
  Sender: FDA-Public Use
  Company Number: DE-002147023-PHHY2018DE099687

PATIENT
  Age: 34 Year
  Sex: Male

DRUGS (4)
  1. COSENTYX [Suspect]
     Active Substance: SECUKINUMAB
     Indication: Psoriasis
     Dosage: 300 MG, UNK (PREFILLED PEN) (AUTOINJECTOR DEVICE)
     Route: 065
     Dates: start: 20170111, end: 20170228
  2. COSENTYX [Suspect]
     Active Substance: SECUKINUMAB
     Dosage: 300 MG, UNK (PREFILLED PEN) (AUTOINJECTOR DEVICE)
     Route: 065
     Dates: start: 20170301, end: 20170818
  3. COSENTYX [Suspect]
     Active Substance: SECUKINUMAB
     Dosage: 300 MG, UNK (PREFILLED PEN) (AUTOINJECTOR DEVICE)
     Route: 065
     Dates: start: 20170819, end: 20171107
  4. COSENTYX [Suspect]
     Active Substance: SECUKINUMAB
     Dosage: 300 MG, UNK (PREFILLED PEN) (AUTOINJECTOR DEVICE)
     Route: 065
     Dates: start: 20171222

REACTIONS (8)
  - Urticaria [Recovered/Resolved]
  - Psoriasis [Recovered/Resolved]
  - Palmoplantar pustulosis [Recovered/Resolved]
  - Dyshidrotic eczema [Not Recovered/Not Resolved]
  - Influenza [Recovered/Resolved]
  - Influenza [Recovered/Resolved]
  - SARS-CoV-2 test positive [Recovered/Resolved]
  - Pyrexia [Recovered/Resolved]

NARRATIVE: CASE EVENT DATE: 20180103
